FAERS Safety Report 20339249 (Version 1)
Quarter: 2022Q1

REPORT INFORMATION
  Report Type: Spontaneous
  Country: US (occurrence: US)
  Receive Date: 20220117
  Receipt Date: 20220117
  Transmission Date: 20220424
  Serious: Yes (Other)
  Sender: FDA-Public Use
  Company Number: US-CELLTRION INC.-2022US000142

PATIENT

DRUGS (1)
  1. HERZUMA [Suspect]
     Active Substance: TRASTUZUMAB-PKRB
     Indication: Endometrial cancer
     Dosage: 157.5 MG WEEKLY (150 MG/VIAL)
     Dates: start: 20211228

REACTIONS (2)
  - Endometrial cancer [Unknown]
  - Off label use [Unknown]
